FAERS Safety Report 16509053 (Version 1)
Quarter: 2019Q3

REPORT INFORMATION
  Report Type: Spontaneous
  Country: US (occurrence: US)
  Receive Date: 20190701
  Receipt Date: 20190701
  Transmission Date: 20191004
  Serious: No
  Sender: FDA-Public Use
  Company Number: None

PATIENT
  Age: 47 Year
  Sex: Female
  Weight: 98.1 kg

DRUGS (6)
  1. PROLIA [Suspect]
     Active Substance: DENOSUMAB
     Indication: OSTEOPOROSIS
  2. HCTZ [Concomitant]
     Active Substance: HYDROCHLOROTHIAZIDE
  3. CARDIZEM [Concomitant]
     Active Substance: DILTIAZEM HYDROCHLORIDE
  4. LOSARTEN [Concomitant]
     Active Substance: LOSARTAN
  5. CALTRATE [Concomitant]
     Active Substance: CALCIUM CARBONATE
  6. D3 SHAKLEE VITAMIN [Concomitant]

REACTIONS (6)
  - Arthralgia [None]
  - Hypoaesthesia [None]
  - Nausea [None]
  - Pain [None]
  - Stress [None]
  - Myalgia [None]

NARRATIVE: CASE EVENT DATE: 20181207
